FAERS Safety Report 9730841 (Version 4)
Quarter: 2014Q1

REPORT INFORMATION
  Report Type: Spontaneous
  Country: JP (occurrence: JP)
  Receive Date: 20131203
  Receipt Date: 20140312
  Transmission Date: 20141002
  Serious: Yes (Death, Life-Threatening, Other)
  Sender: FDA-Public Use
  Company Number: JP-ROCHE-1309106

PATIENT
  Age: 54 Year
  Sex: Female
  Weight: 41 kg

DRUGS (9)
  1. AVASTIN [Suspect]
     Indication: BREAST CANCER METASTATIC
     Route: 041
     Dates: start: 20111114, end: 20111128
  2. AVASTIN [Suspect]
     Route: 041
     Dates: start: 20111212, end: 20111226
  3. PACLITAXEL [Suspect]
     Indication: BREAST CANCER METASTATIC
     Route: 041
     Dates: start: 20110701, end: 201111
  4. PACLITAXEL [Suspect]
     Route: 041
     Dates: start: 20111114, end: 201201
  5. CALONAL [Concomitant]
     Indication: PAIN
     Dosage: DOSAGE IS UNCERTAIN.
     Route: 048
     Dates: start: 20111205, end: 20111205
  6. CALONAL [Concomitant]
     Indication: PAIN
     Dosage: DOSAGE IS UNCERTAIN.
     Route: 048
     Dates: start: 20111219, end: 20111219
  7. CALONAL [Concomitant]
     Indication: PAIN
     Dosage: DOSAGE IS UNCERTAIN.
     Route: 048
     Dates: start: 20111222, end: 20111222
  8. CALONAL [Concomitant]
     Indication: PAIN
     Dosage: DOSAGE IS UNCERTAIN.
     Route: 048
     Dates: start: 20120106, end: 20120106
  9. DECADRON [Concomitant]
     Dosage: AT CHEMOTHERAPY.
     Route: 065
     Dates: end: 2011

REACTIONS (4)
  - Breast cancer [Fatal]
  - Gastrointestinal perforation [Recovering/Resolving]
  - Septic shock [Recovering/Resolving]
  - Disseminated intravascular coagulation [Unknown]
